FAERS Safety Report 4392715-9 (Version None)
Quarter: 2004Q3

REPORT INFORMATION
  Report Type: 
  Country: None (occurrence: None)
  Receive Date: 20040702
  Receipt Date: 20040324
  Transmission Date: 20050211
  Serious: Yes (Other)
  Sender: FDA-Public Use
  Company Number: 2004UW05700

PATIENT
  Age: 78 Year
  Sex: Female
  Weight: 65.7716 kg

DRUGS (5)
  1. CRESTOR [Suspect]
     Indication: BLOOD CHOLESTEROL INCREASED
     Dosage: 10 MG DAILY; PO
     Route: 048
     Dates: start: 20040320
  2. SULAR [Concomitant]
  3. COZAAR [Concomitant]
  4. HYZAAR [Concomitant]
  5. ZIAC [Concomitant]

REACTIONS (2)
  - PAIN IN EXTREMITY [None]
  - VARICOSE VEIN [None]
